FAERS Safety Report 19307010 (Version 1)
Quarter: 2021Q2

REPORT INFORMATION
  Report Type: Spontaneous
  Country: GR (occurrence: GR)
  Receive Date: 20210526
  Receipt Date: 20210526
  Transmission Date: 20210717
  Serious: Yes (Life-Threatening, Other)
  Sender: FDA-Public Use
  Company Number: GR-MYLANLABS-2021M1030066

PATIENT
  Age: 29 Year
  Sex: Female

DRUGS (1)
  1. LEPONEX [Suspect]
     Active Substance: CLOZAPINE
     Indication: PSYCHOTIC DISORDER
     Dosage: 200 MILLIGRAM, QD

REACTIONS (3)
  - Agranulocytosis [Recovered/Resolved]
  - COVID-19 [Recovered/Resolved]
  - Drug-disease interaction [Unknown]
